FAERS Safety Report 8955439 (Version 1)
Quarter: 2012Q4

REPORT INFORMATION
  Report Type: 
  Country: US (occurrence: US)
  Receive Date: 20121207
  Receipt Date: 20121207
  Transmission Date: 20130627
  Serious: Yes (Hospitalization)
  Sender: FDA-Public Use
  Company Number: US-JNJFOC-2006044029

PATIENT
  Age: 57 Year
  Sex: Female
  Weight: 121.1 kg

DRUGS (4)
  1. BENADRYL [Suspect]
     Route: 048
  2. BENADRYL [Interacting]
     Indication: SLEEP DISORDER
     Dosage: Daily Dose Text: AT NIGHT AS NEEDED FOR SEVERAL YEARS
     Route: 048
  3. MOTRIN [Suspect]
     Indication: ARTHRALGIA
     Dosage: Daily Dose Text: 400MG, 1 IN 1 TOTAL
     Route: 048
  4. PARACETAMOL [Suspect]
     Indication: ARTHRALGIA
     Dosage: Daily Dose Text: 1000MG EVERY 4-6 HOURS AS NEEDED
     Route: 048
     Dates: end: 20060313

REACTIONS (5)
  - Hypersensitivity [Recovered/Resolved]
  - Abdominal pain [Not Recovered/Not Resolved]
  - Drug interaction [Unknown]
  - Diarrhoea [Recovered/Resolved]
  - Pollakiuria [Recovered/Resolved]
